FAERS Safety Report 8252696-4 (Version None)
Quarter: 2012Q2

REPORT INFORMATION
  Report Type: 
  Country: None (occurrence: None)
  Receive Date: 20120402
  Receipt Date: 20111129
  Transmission Date: 20120825
  Serious: No
  Sender: FDA-Public Use
  Company Number: US-ABBOTT-11P-163-0878930-00

PATIENT
  Sex: Female

DRUGS (1)
  1. ANDROGEL [Suspect]
     Indication: LIBIDO DECREASED
     Dates: start: 20111129

REACTIONS (1)
  - OFF LABEL USE [None]
